FAERS Safety Report 14570639 (Version 1)
Quarter: 2018Q1

REPORT INFORMATION
  Report Type: Spontaneous
  Country: US (occurrence: US)
  Receive Date: 20180226
  Receipt Date: 20180226
  Transmission Date: 20180509
  Serious: Yes (Hospitalization, Other)
  Sender: FDA-Public Use
  Company Number: US-ROCHE-2074877

PATIENT
  Age: 43 Year
  Sex: Male
  Weight: 120.31 kg

DRUGS (1)
  1. TAMIFLU [Suspect]
     Active Substance: OSELTAMIVIR PHOSPHATE
     Indication: INFLUENZA
     Dosage: ONE DOSE
     Route: 048
     Dates: start: 20180127, end: 20180127

REACTIONS (8)
  - Thinking abnormal [Not Recovered/Not Resolved]
  - Poor quality sleep [Unknown]
  - Malaise [Not Recovered/Not Resolved]
  - Tremor [Unknown]
  - Circulatory collapse [Unknown]
  - Amnestic disorder [Not Recovered/Not Resolved]
  - Dyskinesia [Unknown]
  - Amnesia [Not Recovered/Not Resolved]

NARRATIVE: CASE EVENT DATE: 20180127
